FAERS Safety Report 7004671-5 (Version None)
Quarter: 2010Q3

REPORT INFORMATION
  Report Type: 
  Country: None (occurrence: None)
  Receive Date: 20100902
  Receipt Date: 20100603
  Transmission Date: 20110219
  Serious: Yes (Disabling, Other)
  Sender: FDA-Public Use
  Company Number: 232604USA

PATIENT
  Sex: Male

DRUGS (1)
  1. METOCLOPRAMIDE [Suspect]
     Dosage: 30-40 MG DAY
     Dates: start: 20050701, end: 20070901

REACTIONS (3)
  - DYSKINESIA [None]
  - TARDIVE DYSKINESIA [None]
  - TREMOR [None]
